FAERS Safety Report 9857596 (Version 1)
Quarter: 2014Q1

REPORT INFORMATION
  Report Type: Report from Study
  Country: BR (occurrence: BR)
  Receive Date: 20140131
  Receipt Date: 20140131
  Transmission Date: 20141002
  Serious: Yes (Hospitalization, Other)
  Sender: FDA-Public Use
  Company Number: PHHY2014BR009395

PATIENT
  Age: 79 Year
  Sex: Female
  Weight: 76 kg

DRUGS (7)
  1. DIOVAN HCT [Suspect]
     Indication: BLOOD PRESSURE ABNORMAL
     Dosage: 1 DF (160MG VALS AND 12.5MG HCTZ), DAILY
     Route: 048
     Dates: end: 20140121
  2. OMEPRAZOL//OMEPRAZOLE [Concomitant]
     Indication: GASTRIC DISORDER
     Dosage: IN THE MORNING
  3. SERTRALINA [Concomitant]
     Indication: DEPRESSION
     Dosage: IN THE MORNING
  4. GLIMEPIRIDE [Concomitant]
     Indication: BLOOD GLUCOSE INCREASED
     Dosage: IN THE MORNING
  5. METFORMIN [Concomitant]
     Indication: DIABETES MELLITUS
     Dosage: IN THE MORNING AND AT NIGHT
  6. CLOPIDOGREL//CLOPIDOGREL BISULFATE [Concomitant]
     Indication: ANTICOAGULANT THERAPY
     Dosage: AT LUNCH
  7. SIMVASTATIN [Concomitant]
     Indication: CARDIAC DISORDER
     Dosage: AT LUNCH

REACTIONS (4)
  - Cerebrovascular accident [Recovered/Resolved]
  - Fall [Recovered/Resolved]
  - Spinal fracture [Recovered/Resolved]
  - Hypotension [Recovered/Resolved]
